FAERS Safety Report 5535175-4 (Version None)
Quarter: 2007Q4

REPORT INFORMATION
  Report Type: 
  Country: None (occurrence: None)
  Receive Date: 20071206
  Receipt Date: 20071126
  Transmission Date: 20080405
  Serious: Yes (Hospitalization, Other)
  Sender: FDA-Public Use
  Company Number: US-JNJFOC-20071001195

PATIENT
  Sex: Male
  Weight: 192.78 kg

DRUGS (8)
  1. REMICADE [Suspect]
     Route: 042
  2. REMICADE [Suspect]
     Route: 042
  3. REMICADE [Suspect]
     Indication: PSORIASIS
     Route: 042
  4. INDOCIN [Concomitant]
  5. METFORMIN HCL [Concomitant]
  6. GLIPIZIDE [Concomitant]
  7. SIMVASTATIN [Concomitant]
  8. LEXOPRIL [Concomitant]

REACTIONS (4)
  - ARTHRALGIA [None]
  - HYPERTENSION [None]
  - NASOPHARYNGITIS [None]
  - PYREXIA [None]
